FAERS Safety Report 10067217 (Version 3)
Quarter: 2014Q2

REPORT INFORMATION
  Report Type: Spontaneous
  Country: US (occurrence: None)
  Receive Date: 20140407
  Receipt Date: 20140527
  Transmission Date: 20141212
  Serious: Yes (Death, Other)
  Sender: FDA-Public Use
  Company Number: 2014-19278

PATIENT
  Age: 55 Year
  Sex: Female
  Weight: 52.2 kg

DRUGS (1)
  1. EYLEA [Suspect]
     Indication: RETINAL VEIN OCCLUSION
     Dosage: 2 MG MILLIGRAM(S), EVERY 4-6 WEEKS, INTRAOCULAR
     Route: 031
     Dates: start: 20121113, end: 20140107

REACTIONS (1)
  - Death [None]
